FAERS Safety Report 8445823 (Version 2)
Quarter: 2013Q3

REPORT INFORMATION
  Report Type: Spontaneous
  Country: US (occurrence: US)
  Receive Date: 20120307
  Receipt Date: 20130821
  Transmission Date: 20140515
  Serious: Yes (Other)
  Sender: FDA-Public Use
  Company Number: US-FRI-1000028687

PATIENT
  Age: 57 Year
  Sex: Female
  Weight: 86.18 kg

DRUGS (6)
  1. VIIBRYD [Suspect]
     Indication: MIGRAINE
     Dosage: 40 MG
     Dates: start: 20111024, end: 20111114
  2. TOPROL XL [Concomitant]
     Dosage: 100 MG
  3. TOPAMAX [Concomitant]
     Dosage: 50 MG
  4. NORGESIC FORTE [Concomitant]
     Indication: HEADACHE
  5. MAXALT [Concomitant]
  6. XANAX [Concomitant]
     Dosage: 0.5 MG

REACTIONS (13)
  - Violence-related symptom [Recovered/Resolved]
  - Depression [Recovered/Resolved]
  - Logorrhoea [Recovered/Resolved]
  - Energy increased [Recovered/Resolved]
  - Feeling abnormal [Recovered/Resolved]
  - Screaming [Recovered/Resolved]
  - Headache [Recovered/Resolved]
  - Agitation [Recovered/Resolved]
  - Insomnia [Recovered/Resolved]
  - Restlessness [Recovered/Resolved]
  - Nausea [Recovered/Resolved]
  - Crying [Recovered/Resolved]
  - Off label use [Recovered/Resolved]
